FAERS Safety Report 5989331-1 (Version None)
Quarter: 2008Q4

REPORT INFORMATION
  Report Type: 
  Country: None (occurrence: None)
  Receive Date: 20081210
  Receipt Date: 20081201
  Transmission Date: 20090506
  Serious: Yes (Death)
  Sender: FDA-Public Use
  Company Number: SI-ABBOTT-08P-261-0486783-00

PATIENT
  Age: 19 Year
  Sex: Male

DRUGS (3)
  1. DEPAKENE [Suspect]
     Indication: EPILEPSY
     Dosage: TABLET CR
     Route: 048
     Dates: start: 20060701, end: 20070601
  2. DEPAKENE [Suspect]
     Route: 048
     Dates: start: 20070601, end: 20070701
  3. DEPAKENE [Suspect]
     Route: 048
     Dates: start: 20070701

REACTIONS (5)
  - HYPOXIA [None]
  - HYPOXIC ENCEPHALOPATHY [None]
  - PULMONARY HAEMORRHAGE [None]
  - PULMONARY OEDEMA [None]
  - SUDDEN UNEXPLAINED DEATH IN EPILEPSY [None]
